FAERS Safety Report 19475845 (Version 1)
Quarter: 2021Q2

REPORT INFORMATION
  Report Type: Spontaneous
  Country: FR (occurrence: FR)
  Receive Date: 20210630
  Receipt Date: 20210630
  Transmission Date: 20210717
  Serious: Yes (Disabling)
  Sender: FDA-Public Use
  Company Number: FR-TEVA-2021-FR-1926302

PATIENT
  Age: 79 Year
  Sex: Male

DRUGS (2)
  1. DOXORUBICINE [Suspect]
     Active Substance: DOXORUBICIN
     Indication: FOLLICULAR LYMPHOMA
     Dosage: 225MG/M2
     Route: 030
     Dates: start: 20200720, end: 20201103
  2. GAZYVARO 1000 MG, SOLUTION A DILUER POUR PERFUSION [Suspect]
     Active Substance: OBINUTUZUMAB
     Indication: FOLLICULAR LYMPHOMA
     Dosage: 1GRAM
     Route: 030
     Dates: start: 20200720, end: 202012

REACTIONS (1)
  - Cardiac failure congestive [Not Recovered/Not Resolved]

NARRATIVE: CASE EVENT DATE: 20210128
